FAERS Safety Report 13266081 (Version 4)
Quarter: 2017Q2

REPORT INFORMATION
  Report Type: Spontaneous
  Country: US (occurrence: US)
  Receive Date: 20170223
  Receipt Date: 20170411
  Transmission Date: 20170830
  Serious: Yes (Hospitalization)
  Sender: FDA-Public Use
  Company Number: US-B.I. PHARMACEUTICALS,INC./RIDGEFIELD-2017-BI-009046

PATIENT
  Age: 54 Year
  Sex: Female
  Weight: 53.98 kg

DRUGS (1)
  1. SPIRIVA [Suspect]
     Active Substance: TIOTROPIUM BROMIDE MONOHYDRATE
     Indication: CHRONIC OBSTRUCTIVE PULMONARY DISEASE
     Route: 055
     Dates: start: 2004

REACTIONS (9)
  - Fatigue [Not Recovered/Not Resolved]
  - Oxygen consumption increased [Unknown]
  - Influenza [Recovered/Resolved]
  - Adverse drug reaction [Recovered/Resolved]
  - Product physical issue [Unknown]
  - Dyspnoea [Unknown]
  - Product physical issue [Unknown]
  - Pain [Not Recovered/Not Resolved]
  - Product quality issue [Unknown]

NARRATIVE: CASE EVENT DATE: 201412
